FAERS Safety Report 6240253-0 (Version None)
Quarter: 2009Q2

REPORT INFORMATION
  Report Type: 
  Country: None (occurrence: None)
  Receive Date: 20090623
  Receipt Date: 20080508
  Transmission Date: 20091009
  Serious: Yes (Other)
  Sender: FDA-Public Use
  Company Number: US-ASTRAZENECA-2008UW09499

PATIENT
  Age: 79 Year
  Sex: Male
  Weight: 81.6 kg

DRUGS (5)
  1. PULMICORT RESPULES [Suspect]
     Indication: ASTHMA
     Route: 055
     Dates: start: 20060101
  2. PULMICORT RESPULES [Suspect]
     Indication: EMPHYSEMA
     Route: 055
     Dates: start: 20060101
  3. PREDNISONE TAB [Concomitant]
  4. FLUCONAZOLE [Concomitant]
  5. OXYGEN [Concomitant]

REACTIONS (1)
  - GLAUCOMA [None]
